FAERS Safety Report 8983704 (Version 1)
Quarter: 2012Q4

REPORT INFORMATION
  Report Type: 
  Country: CH (occurrence: CH)
  Receive Date: 20121221
  Receipt Date: 20121221
  Transmission Date: 20130627
  Serious: Yes (Death)
  Sender: FDA-Public Use
  Company Number: CH-ABBOTT-12P-151-1025794-00

PATIENT

DRUGS (2)
  1. SEVOFLURANE [Suspect]
     Indication: MAINTENANCE OF ANAESTHESIA
  2. ETOMIDATE [Concomitant]
     Indication: INDUCTION OF ANAESTHESIA

REACTIONS (1)
  - Cardiac death [Fatal]
